FAERS Safety Report 8346699-9 (Version None)
Quarter: 2012Q2

REPORT INFORMATION
  Report Type: 
  Country: None (occurrence: None)
  Receive Date: 20120509
  Receipt Date: 20120501
  Transmission Date: 20120825
  Serious: Yes (Hospitalization, Other)
  Sender: FDA-Public Use
  Company Number: US-PURDUE-USA-2011-0080347

PATIENT
  Sex: Male
  Weight: 97.506 kg

DRUGS (3)
  1. OXYCONTIN [Suspect]
     Dosage: 80 MG, PM
     Route: 048
  2. OXYCONTIN [Suspect]
     Indication: INTERVERTEBRAL DISC DEGENERATION
     Dosage: 160 MG, UNK
     Route: 048
  3. OXYCODONE HCL [Concomitant]
     Dosage: 30 MG, Q4- 6H PRN
     Route: 048

REACTIONS (3)
  - NECK INJURY [None]
  - FALL [None]
  - INJURY [None]
